FAERS Safety Report 6736468-5 (Version None)
Quarter: 2010Q2

REPORT INFORMATION
  Report Type: 
  Country: None (occurrence: None)
  Receive Date: 20100521
  Receipt Date: 20100331
  Transmission Date: 20101027
  Serious: Yes (Other)
  Sender: FDA-Public Use
  Company Number: IT-CELGENEUS-083-20785-10040071

PATIENT
  Age: 66 Year

DRUGS (5)
  1. THALIDOMIDE [Suspect]
     Indication: AMYLOIDOSIS
     Route: 048
     Dates: start: 20100223
  2. THALIDOMIDE [Suspect]
     Route: 048
     Dates: start: 20100101
  3. COLCHICINE [Concomitant]
     Indication: AMYLOIDOSIS
     Route: 065
  4. STEROIDS [Concomitant]
     Indication: AMYLOIDOSIS
     Route: 051
  5. STEROIDS [Concomitant]
     Route: 048

REACTIONS (2)
  - CARDIAC DISORDER [None]
  - DRUG INEFFECTIVE [None]
